FAERS Safety Report 4399794-3 (Version None)
Quarter: 2004Q3

REPORT INFORMATION
  Report Type: 
  Country: None (occurrence: None)
  Receive Date: 20040714
  Receipt Date: 20040701
  Transmission Date: 20050211
  Serious: Yes (Hospitalization)
  Sender: FDA-Public Use
  Company Number: 2004044108

PATIENT
  Age: 74 Year
  Sex: Female

DRUGS (1)
  1. ZOLOFT [Suspect]
     Indication: ANXIETY
     Dosage: 100 MG (100 MG, 1 IN 1 D), ORAL
     Route: 048
     Dates: start: 20040301

REACTIONS (3)
  - EPILEPSY [None]
  - HYPONATRAEMIA [None]
  - LOSS OF CONSCIOUSNESS [None]
